FAERS Safety Report 8408469-2 (Version None)
Quarter: 2012Q2

REPORT INFORMATION
  Report Type: 
  Country: None (occurrence: None)
  Receive Date: 20120604
  Receipt Date: 20120525
  Transmission Date: 20120825
  Serious: Yes (Other)
  Sender: FDA-Public Use
  Company Number: US-ABBOTT-12P-163-0940313-00

PATIENT
  Sex: Female
  Weight: 50.848 kg

DRUGS (6)
  1. LUPRON DEPOT [Suspect]
     Dates: start: 20120501
  2. KRILL OIL [Concomitant]
     Indication: PRODUCT USED FOR UNKNOWN INDICATION
     Dosage: DAILY
     Route: 048
  3. LUPRON DEPOT [Suspect]
     Dates: start: 20070201, end: 20070201
  4. LUPRON DEPOT [Suspect]
     Indication: ENDOMETRIOSIS
     Dates: start: 20061209, end: 20061209
  5. LUPRON DEPOT [Suspect]
     Dates: start: 20101101, end: 20101101
  6. NORETHINDRONE ACETATE [Suspect]
     Indication: PRODUCT USED FOR UNKNOWN INDICATION
     Dates: start: 20061209

REACTIONS (6)
  - MIGRAINE WITH AURA [None]
  - ENDOMETRIOSIS [None]
  - UTERINE HAEMORRHAGE [None]
  - NYSTAGMUS [None]
  - UTERINE LEIOMYOMA [None]
  - UTERINE MASS [None]
